FAERS Safety Report 10101409 (Version 3)
Quarter: 2014Q2

REPORT INFORMATION
  Report Type: Spontaneous
  Country: US (occurrence: US)
  Receive Date: 20140424
  Receipt Date: 20140505
  Transmission Date: 20141212
  Serious: Yes (Other)
  Sender: FDA-Public Use
  Company Number: US-AMGEN-USASP2014028074

PATIENT
  Age: 64 Year
  Sex: Female

DRUGS (1)
  1. SENSIPAR [Suspect]
     Indication: PARATHYROID DISORDER
     Dosage: 30 MG, UNK
     Route: 065
     Dates: start: 20140415

REACTIONS (5)
  - Papillary thyroid cancer [Not Recovered/Not Resolved]
  - Renal disorder [Unknown]
  - Nephrolithiasis [Unknown]
  - Muscle spasms [Unknown]
  - Sleep disorder due to general medical condition, insomnia type [Unknown]
